FAERS Safety Report 17711345 (Version 1)
Quarter: 2020Q2

REPORT INFORMATION
  Report Type: Spontaneous
  Country: US (occurrence: US)
  Receive Date: 20200424
  Receipt Date: 20200424
  Transmission Date: 20200714
  Serious: Yes (Other)
  Sender: FDA-Public Use
  Company Number: None

PATIENT
  Age: 73 Year
  Sex: Female
  Weight: 60.75 kg

DRUGS (11)
  1. NITROFURANTOIN MONOHYDRATE MACROCRYSTALS [Suspect]
     Active Substance: NITROFURANTOIN\NITROFURANTOIN MONOHYDRATE
     Indication: CYSTITIS
     Dosage: ?          QUANTITY:14 CAPSULE(S);?
     Route: 048
     Dates: start: 20200414, end: 20200415
  2. ACETYL-L-CARNITINE [Concomitant]
  3. VAGIFEM 10 MCG [Concomitant]
  4. PEA + WITH MEIVA CURCUMIN [Concomitant]
  5. GABAPENTIN 400 MG [Concomitant]
     Active Substance: GABAPENTIN
  6. IBUPROFEN 600 MG [Concomitant]
     Active Substance: IBUPROFEN
  7. NALTREXONE HCL 4.5 MG [Concomitant]
  8. MULTIVITAMIN [Concomitant]
     Active Substance: VITAMINS
  9. IRBESARTAN 75 MG [Concomitant]
     Active Substance: IRBESARTAN
  10. EZETIMIBE-SIMVASTATIN 10 MG [Concomitant]
  11. CLIMARA DAY PATCH [Concomitant]

REACTIONS (5)
  - Burning sensation [None]
  - Body temperature fluctuation [None]
  - Erythema [None]
  - Chills [None]
  - Feeling hot [None]

NARRATIVE: CASE EVENT DATE: 20200414
